FAERS Safety Report 6110737-4 (Version None)
Quarter: 2009Q1

REPORT INFORMATION
  Report Type: 
  Country: None (occurrence: None)
  Receive Date: 20090309
  Receipt Date: 20090303
  Transmission Date: 20090719
  Serious: Yes (Life-Threatening, Hospitalization)
  Sender: FDA-Public Use
  Company Number: ADE2009-0450

PATIENT
  Age: 60 Year
  Sex: Female

DRUGS (1)
  1. PENICILLIN V [Suspect]

REACTIONS (2)
  - DISSEMINATED INTRAVASCULAR COAGULATION [None]
  - SEPTIC SHOCK [None]
